FAERS Safety Report 12463785 (Version 1)
Quarter: 2016Q2

REPORT INFORMATION
  Report Type: Spontaneous
  Country: US (occurrence: US)
  Receive Date: 20160614
  Receipt Date: 20160614
  Transmission Date: 20160815
  Serious: Yes (Other)
  Sender: FDA-Public Use
  Company Number: US-GLAXOSMITHKLINE-US2016083409

PATIENT
  Sex: Female

DRUGS (3)
  1. SARNA (CAMPHOR (NATURAL)\MENTHOL) [Suspect]
     Active Substance: CAMPHOR (NATURAL)\MENTHOL
     Indication: SKIN ULCER
  2. SARNA (CAMPHOR (NATURAL)\MENTHOL) [Suspect]
     Active Substance: CAMPHOR (NATURAL)\MENTHOL
     Indication: RASH
  3. SARNA (CAMPHOR (NATURAL)\MENTHOL) [Suspect]
     Active Substance: CAMPHOR (NATURAL)\MENTHOL
     Indication: URTICARIA
     Dosage: UNK UNK, BID
     Dates: start: 20160530, end: 20160531

REACTIONS (3)
  - Off label use [Unknown]
  - Deafness unilateral [Not Recovered/Not Resolved]
  - Drug prescribing error [Unknown]

NARRATIVE: CASE EVENT DATE: 20160530
